FAERS Safety Report 8052285 (Version 30)
Quarter: 2023Q4

REPORT INFORMATION
  Report Type: Report from Study
  Country: CA (occurrence: CA)
  Receive Date: 20110725
  Receipt Date: 20231204
  Transmission Date: 20240110
  Serious: Yes (Hospitalization, Other)
  Sender: FDA-Public Use
  Company Number: PHHY2011CA63609

PATIENT
  Age: 65 Year
  Sex: Male

DRUGS (8)
  1. SANDOSTATIN LAR DEPOT [Suspect]
     Active Substance: OCTREOTIDE ACETATE
     Indication: Metastatic carcinoid tumour
     Dosage: 20 MG, Q4W
     Route: 030
     Dates: start: 20090319, end: 20191126
  2. SANDOSTATIN LAR DEPOT [Suspect]
     Active Substance: OCTREOTIDE ACETATE
     Indication: Vasoactive intestinal polypeptide test abnormal
     Dosage: 20 MG, Q3W
     Route: 030
     Dates: end: 20220223
  3. SANDOSTATIN LAR DEPOT [Suspect]
     Active Substance: OCTREOTIDE ACETATE
     Dosage: 20 MG, Q3W
     Route: 030
  4. AFINITOR [Suspect]
     Active Substance: EVEROLIMUS
     Indication: Neuroendocrine tumour
     Dosage: 1 DF (STRENGTH: 5MG)
     Route: 048
     Dates: end: 202005
  5. AFINITOR [Suspect]
     Active Substance: EVEROLIMUS
     Indication: Vasoactive intestinal polypeptide test abnormal
     Dosage: 1 DF (STRENGTH: 2.5MG)
     Route: 048
     Dates: start: 202005
  6. PERINDOPRIL ARGININE [Concomitant]
     Active Substance: PERINDOPRIL ARGININE
     Indication: Product used for unknown indication
     Dosage: UNK
     Route: 065
  7. CRESTOR [Concomitant]
     Active Substance: ROSUVASTATIN CALCIUM
     Indication: Product used for unknown indication
     Dosage: UNK
     Route: 065
  8. ARTHROTEC [Concomitant]
     Active Substance: DICLOFENAC SODIUM\MISOPROSTOL
     Indication: Product used for unknown indication
     Dosage: UNK
     Route: 065

REACTIONS (35)
  - Ileus paralytic [Unknown]
  - Constipation [Recovered/Resolved]
  - Small intestinal obstruction [Unknown]
  - Tumour invasion [Recovering/Resolving]
  - Carcinoid tumour of the small bowel [Recovering/Resolving]
  - Bradycardia [Unknown]
  - Metastatic carcinoid tumour [Unknown]
  - Malignant neoplasm progression [Unknown]
  - Neuroendocrine tumour [Recovering/Resolving]
  - Blood pressure decreased [Recovered/Resolved]
  - Pain [Unknown]
  - Arthralgia [Unknown]
  - Peripheral swelling [Unknown]
  - Respiratory rate decreased [Unknown]
  - Body temperature decreased [Unknown]
  - Blood potassium increased [Recovering/Resolving]
  - Blood pressure increased [Recovering/Resolving]
  - Nasopharyngitis [Unknown]
  - Blood pressure systolic increased [Unknown]
  - Joint stiffness [Unknown]
  - Heart rate increased [Recovered/Resolved]
  - 5-hydroxyindolacetic acid increased [Unknown]
  - Cough [Unknown]
  - Peritoneal lesion [Unknown]
  - Intestinal mass [Unknown]
  - Scab [Unknown]
  - Acne [Unknown]
  - Fatigue [Unknown]
  - Asthenia [Unknown]
  - Incision site pain [Unknown]
  - Injection site mass [Unknown]
  - Injection site pain [Unknown]
  - Injection site discomfort [Recovering/Resolving]
  - Injection site haemorrhage [Recovering/Resolving]
  - Inappropriate schedule of product administration [Unknown]

NARRATIVE: CASE EVENT DATE: 20110712
